FAERS Safety Report 6896316-X (Version None)
Quarter: 2010Q3

REPORT INFORMATION
  Report Type: 
  Country: None (occurrence: None)
  Receive Date: 20100802
  Receipt Date: 20100729
  Transmission Date: 20110219
  Serious: Yes (Death, Life-Threatening, Hospitalization)
  Sender: FDA-Public Use
  Company Number: IT-AMGEN-UK258705

PATIENT
  Sex: Female

DRUGS (6)
  1. PANITUMUMAB [Suspect]
     Indication: SQUAMOUS CELL CARCINOMA
     Route: 042
     Dates: start: 20071213
  2. CISPLATIN [Suspect]
     Route: 042
     Dates: start: 20071213
  3. FLUOROURACIL [Suspect]
     Route: 042
     Dates: start: 20071213
  4. DURAGESIC-100 [Concomitant]
     Route: 062
     Dates: start: 20071216
  5. CODEINE PHOSPHATE AND ACETAMINOPHEN [Concomitant]
     Dates: start: 20071216
  6. RANITIDINE [Concomitant]
     Dates: start: 20071216

REACTIONS (7)
  - DIARRHOEA [None]
  - DIHYDROPYRIMIDINE DEHYDROGENASE DEFICIENCY [None]
  - HYPOKALAEMIA [None]
  - NEUTROPENIC SEPSIS [None]
  - PANCYTOPENIA [None]
  - STOMATITIS [None]
  - THROMBOCYTOPENIA [None]
